FAERS Safety Report 24368599 (Version 1)
Quarter: 2024Q3

REPORT INFORMATION
  Report Type: Spontaneous
  Country: IN (occurrence: IN)
  Receive Date: 20240926
  Receipt Date: 20240926
  Transmission Date: 20241016
  Serious: Yes (Hospitalization, Other)
  Sender: AMGEN
  Company Number: IN-AMGEN-INDSP2024188425

PATIENT
  Age: 20 Year
  Sex: Male

DRUGS (1)
  1. XGEVA [Suspect]
     Active Substance: DENOSUMAB
     Indication: Bone giant cell tumour
     Dosage: UNK
     Route: 065

REACTIONS (3)
  - Bone giant cell tumour [Unknown]
  - Spinal cord compression [Unknown]
  - Respiratory distress [Unknown]
